FAERS Safety Report 15751281 (Version 2)
Quarter: 2018Q4

REPORT INFORMATION
  Report Type: Spontaneous
  Country: FR (occurrence: FR)
  Receive Date: 20181221
  Receipt Date: 20181226
  Transmission Date: 20190205
  Serious: Yes (Hospitalization)
  Sender: FDA-Public Use
  Company Number: FR-PFIZER INC-2018522394

PATIENT
  Age: 88 Year
  Sex: Female
  Weight: 76 kg

DRUGS (17)
  1. IOPIDINE [APRACLONIDINE] [Concomitant]
     Indication: GLAUCOMA
     Dosage: UNK
     Route: 047
  2. TILDIEM [Concomitant]
     Active Substance: DILTIAZEM HYDROCHLORIDE
     Dosage: 120 MG, QD
     Route: 048
     Dates: end: 20181121
  3. DUPHALAC [Concomitant]
     Active Substance: LACTULOSE
     Dosage: UNK UNK, QD
     Route: 048
     Dates: end: 20181121
  4. DOLIPRANE [Concomitant]
     Active Substance: ACETAMINOPHEN
     Dosage: UNK
     Route: 048
  5. DIFFU K [Concomitant]
     Active Substance: POTASSIUM CHLORIDE
     Dosage: UNK
     Route: 048
  6. COSOPT [Concomitant]
     Active Substance: DORZOLAMIDE HYDROCHLORIDE\TIMOLOL MALEATE
     Indication: GLAUCOMA
     Dosage: UNK
     Route: 047
  7. LANSOPRAZOLE MYLAN [Suspect]
     Active Substance: LANSOPRAZOLE
     Indication: PANCREATIC CYST
     Dosage: 15 MG, QD (1 DF)
     Route: 048
     Dates: start: 20181121, end: 20181127
  8. LOVENOX [Concomitant]
     Active Substance: ENOXAPARIN SODIUM
     Dosage: 4000 IU, QD
     Route: 058
  9. KARDEGIC [Concomitant]
     Active Substance: ASPIRIN DL-LYSINE
     Dosage: 75 MG, QD
     Route: 048
  10. SIMVASTATINE ARROW [Concomitant]
     Active Substance: SIMVASTATIN
     Dosage: UNK
     Route: 048
  11. ALLOPURINOL. [Concomitant]
     Active Substance: ALLOPURINOL
     Dosage: 300 MG, QD
     Route: 048
     Dates: end: 20181121
  12. CALCIDOSE VITAMINE D [Concomitant]
     Active Substance: CALCIUM\CHOLECALCIFEROL
     Dosage: UNK
     Route: 048
  13. NATISPRAY [Concomitant]
     Active Substance: NITROGLYCERIN
     Dosage: 0.15 MG, UNK
     Route: 060
     Dates: end: 20181121
  14. INIPOMP [Suspect]
     Active Substance: PANTOPRAZOLE SODIUM
     Indication: PANCREATIC CYST
     Dosage: 20 MG, QD (1 DF)
     Route: 048
     Dates: end: 20181121
  15. MECIR [Concomitant]
     Active Substance: TAMSULOSIN HYDROCHLORIDE
     Dosage: 0.4 MG, QD
     Route: 048
     Dates: end: 20181121
  16. LAMALINE (ACETAMINOPHEN\CAFFEINE\OPIUM) [Concomitant]
     Active Substance: ACETAMINOPHEN\CAFFEINE\OPIUM
     Dosage: UNK UNK, QD
     Route: 048
     Dates: end: 20181121
  17. XALACOM [Concomitant]
     Active Substance: LATANOPROST\TIMOLOL MALEATE
     Indication: GLAUCOMA
     Dosage: UNK
     Route: 047

REACTIONS (1)
  - Inappropriate antidiuretic hormone secretion [Recovering/Resolving]

NARRATIVE: CASE EVENT DATE: 20181119
